FAERS Safety Report 8637099 (Version 3)
Quarter: 2013Q3

REPORT INFORMATION
  Report Type: Spontaneous
  Country: TR (occurrence: TR)
  Receive Date: 20120627
  Receipt Date: 20130703
  Transmission Date: 20140515
  Serious: Yes (Hospitalization)
  Sender: FDA-Public Use
  Company Number: TR-AMGEN-TURSP2012038479

PATIENT
  Age: 62 Year
  Sex: Female
  Weight: 50 kg

DRUGS (6)
  1. ENBREL [Suspect]
     Indication: RHEUMATOID ARTHRITIS
     Dosage: 50 MG, WEEKLY
     Route: 058
     Dates: start: 20091118, end: 201107
  2. ENBREL [Suspect]
     Dosage: 50 MG, WEEKLY
     Route: 058
     Dates: start: 201107, end: 201207
  3. ENBREL [Suspect]
     Dosage: 50 MG, WEEKLY
     Route: 058
     Dates: start: 201207, end: 2013
  4. ENBREL [Suspect]
     Dosage: 25 MG, WEEKLY
     Route: 058
     Dates: start: 2013
  5. EMTHEXATE                          /00113801/ [Concomitant]
     Indication: RHEUMATOID ARTHRITIS
     Dosage: 10 MG, QWK
     Route: 048
     Dates: start: 1998, end: 2012
  6. EMTHEXATE                          /00113801/ [Concomitant]
     Dosage: 5 MG, QWK, (2 TABLETS AT 2.5)
     Route: 058
     Dates: start: 2012

REACTIONS (12)
  - Hypokinesia [Not Recovered/Not Resolved]
  - Capillary fragility [Not Recovered/Not Resolved]
  - Local swelling [Not Recovered/Not Resolved]
  - Tendon rupture [Recovered/Resolved]
  - Pain [Recovered/Resolved]
  - Insomnia [Recovered/Resolved]
  - Tooth erosion [Recovered/Resolved]
  - Osteolysis [Unknown]
  - Weight decreased [Recovered/Resolved]
  - Stress [Recovered/Resolved]
  - Hypersensitivity [Recovered/Resolved]
  - Localised infection [Recovered/Resolved]
